FAERS Safety Report 24766520 (Version 2)
Quarter: 2024Q4

REPORT INFORMATION
  Report Type: Report from Study
  Country: US (occurrence: US)
  Receive Date: 20241223
  Receipt Date: 20241227
  Transmission Date: 20250114
  Serious: Yes (Other)
  Sender: ROCHE
  Company Number: US-ROCHE-10000159950

PATIENT
  Age: 45 Year
  Sex: Female
  Weight: 48.987 kg

DRUGS (1)
  1. EVRYSDI [Suspect]
     Active Substance: RISDIPLAM
     Indication: Spinal muscular atrophy
     Dosage: 100 ML BOTTLE
     Route: 048

REACTIONS (1)
  - Acidosis [Unknown]
